FAERS Safety Report 7418832-4 (Version None)
Quarter: 2011Q2

REPORT INFORMATION
  Report Type: 
  Country: None (occurrence: None)
  Receive Date: 20110415
  Receipt Date: 20110411
  Transmission Date: 20111010
  Serious: No
  Sender: FDA-Public Use
  Company Number: US-PFIZER INC-2011079664

PATIENT
  Sex: Female
  Weight: 58.05 kg

DRUGS (2)
  1. LYRICA [Suspect]
     Indication: BACK PAIN
     Dosage: 75 MG, 1X/DAY
     Route: 048
     Dates: start: 20110101
  2. CELEXA [Concomitant]
     Indication: ANXIETY
     Dosage: 40 MG, UNK

REACTIONS (2)
  - VAGINAL HAEMORRHAGE [None]
  - MENSTRUATION IRREGULAR [None]
